FAERS Safety Report 8312930-9 (Version None)
Quarter: 2012Q1

REPORT INFORMATION
  Report Type: 
  Country: None (occurrence: None)
  Receive Date: 20120315
  Receipt Date: 20110503
  Transmission Date: 20120608
  Serious: No
  Sender: FDA-Public Use
  Company Number: PHHY2011US26337

PATIENT
  Age: 48 Year
  Sex: Female
  Weight: 61.2 kg

DRUGS (9)
  1. VALTREX [Concomitant]
  2. ORTHO TRI-CYCLEN [Concomitant]
  3. FIORICET [Concomitant]
  4. DOXYCYCLINE [Concomitant]
  5. GILENYA [Suspect]
     Indication: MULTIPLE SCLEROSIS
     Dosage: 0.5 MG, QD, ORAL
     Route: 048
     Dates: start: 20101206
  6. TRAMADOL HCL [Concomitant]
  7. ALLEGRA (FEXOFENADINE HYDROCHLORIDE, PSEUDOEPHEDRINE HYDROCHLORIDE) [Concomitant]
  8. FLEXERIL [Concomitant]
  9. ZYRTEC [Concomitant]

REACTIONS (5)
  - MUSCULOSKELETAL PAIN [None]
  - APHTHOUS STOMATITIS [None]
  - DRY MOUTH [None]
  - ORAL DISORDER [None]
  - DRY SKIN [None]
